FAERS Safety Report 19278395 (Version 1)
Quarter: 2021Q2

REPORT INFORMATION
  Report Type: Spontaneous
  Country: US (occurrence: US)
  Receive Date: 20210520
  Receipt Date: 20210520
  Transmission Date: 20210717
  Serious: No
  Sender: FDA-Public Use
  Company Number: None

PATIENT
  Age: 64 Year
  Sex: Male
  Weight: 108.41 kg

DRUGS (2)
  1. NAPROXEN (NAPROXEN 500MG TAB) [Suspect]
     Active Substance: NAPROXEN
     Indication: OSTEOARTHRITIS
     Route: 048
     Dates: start: 20150715, end: 20210515
  2. ASPIRIN (ASPIRIN 325MG TAB) [Suspect]
     Active Substance: ASPIRIN
     Indication: PRODUCT USED FOR UNKNOWN INDICATION
     Route: 048
     Dates: start: 20150716, end: 20210515

REACTIONS (2)
  - Gastric haemorrhage [None]
  - Duodenal ulcer [None]

NARRATIVE: CASE EVENT DATE: 20190516
